FAERS Safety Report 7015243-0 (Version None)
Quarter: 2010Q3

REPORT INFORMATION
  Report Type: 
  Country: None (occurrence: None)
  Receive Date: 20100927
  Receipt Date: 20100915
  Transmission Date: 20110219
  Serious: Yes (Hospitalization)
  Sender: FDA-Public Use
  Company Number: DE-JNJFOC-20100906018

PATIENT
  Sex: Male
  Weight: 32.6 kg

DRUGS (5)
  1. INFLIXIMAB, RECOMBINANT [Suspect]
     Indication: CROHN'S DISEASE
     Route: 042
  2. 5-ASA [Concomitant]
  3. SELENASE [Concomitant]
  4. VITAMIN A [Concomitant]
  5. CALCILAC [Concomitant]

REACTIONS (1)
  - GASTROINTESTINAL NEOPLASM [None]
